FAERS Safety Report 15676991 (Version 1)
Quarter: 2018Q4

REPORT INFORMATION
  Report Type: Spontaneous
  Country: AU (occurrence: AU)
  Receive Date: 20181130
  Receipt Date: 20181130
  Transmission Date: 20190205
  Serious: Yes (Other)
  Sender: FDA-Public Use
  Company Number: AU-TASMAN PHARMA, INC.-2018TSM00187

PATIENT
  Sex: Male

DRUGS (11)
  1. CLOZAPINE. [Suspect]
     Active Substance: CLOZAPINE
     Dosage: 675 MG
     Dates: start: 20150407, end: 20150430
  2. CLOZAPINE. [Suspect]
     Active Substance: CLOZAPINE
     Dosage: 625 MG
     Dates: start: 20150929, end: 20151122
  3. CLOZAPINE. [Suspect]
     Active Substance: CLOZAPINE
     Dosage: 625 MG
     Dates: start: 20151123, end: 20160410
  4. CLOZAPINE. [Suspect]
     Active Substance: CLOZAPINE
     Dosage: 625 MG
     Dates: start: 20150706, end: 20150802
  5. VERSACLOZ [Suspect]
     Active Substance: CLOZAPINE
     Dosage: 600 MG
     Route: 048
     Dates: start: 20181112
  6. CLOZAPINE. [Suspect]
     Active Substance: CLOZAPINE
     Dosage: 675 MG
     Dates: start: 20141208, end: 20150104
  7. CLOZAPINE. [Suspect]
     Active Substance: CLOZAPINE
     Dosage: 600 MG
     Dates: start: 20161025, end: 20181111
  8. CLOZAPINE. [Suspect]
     Active Substance: CLOZAPINE
     Dosage: 525 MG
     Dates: start: 20150803, end: 20150928
  9. CLOZAPINE. [Suspect]
     Active Substance: CLOZAPINE
     Dosage: 650 MG
     Dates: start: 20160411, end: 20161024
  10. CLOZAPINE. [Suspect]
     Active Substance: CLOZAPINE
     Dosage: 675 MG
     Dates: start: 20150105, end: 20150406
  11. CLOZAPINE. [Suspect]
     Active Substance: CLOZAPINE
     Dosage: 675 MG
     Dates: start: 20150501, end: 20150705

REACTIONS (3)
  - Dysphagia [Not Recovered/Not Resolved]
  - Oesophageal stenosis [Not Recovered/Not Resolved]
  - White blood cell count increased [Recovering/Resolving]

NARRATIVE: CASE EVENT DATE: 20171017
